FAERS Safety Report 5273283-6 (Version None)
Quarter: 2007Q1

REPORT INFORMATION
  Report Type: 
  Country: None (occurrence: None)
  Receive Date: 20070319
  Receipt Date: 20070307
  Transmission Date: 20070707
  Serious: Yes (Hospitalization)
  Sender: FDA-Public Use
  Company Number: 2007-00342

PATIENT
  Age: 71 Year
  Sex: Female

DRUGS (33)
  1. VELCADE [Suspect]
     Indication: MULTIPLE MYELOMA
     Dosage: 1.70 MG, UNK, UNKNOWN
     Dates: start: 20061228, end: 20070129
  2. DEXAMETHASONE [Concomitant]
  3. PREDNISOLONE [Concomitant]
  4. LANSOPRAZOLE [Concomitant]
  5. BAKTAR (SULFAMETHOXAZOLE, TRIMETHOPRIM) [Concomitant]
  6. DEPAKENE [Concomitant]
  7. ROHYPNOL (FLUNITRAZEPAM) [Concomitant]
  8. MARZULENE S (LEVOGLUTAMIDE, SODIUM GUALENATE) [Concomitant]
  9. LASIX [Concomitant]
  10. MAGNESIUM OXIDE (MAGNESIUM OXIDE) [Concomitant]
  11. VALTREX [Concomitant]
  12. ALLOID (SODIUM ALGINATE) [Concomitant]
  13. PURSENNID (SENNA LEAF) [Concomitant]
  14. WARFARIN SODIUM [Concomitant]
  15. MYCOSYST (FLUCONAZOLE) [Concomitant]
  16. ALLOPURINOL [Concomitant]
  17. PAZUFLOXACIN (PAZUFLOXACIN) [Concomitant]
  18. ALBUMIN (HUMAN) [Concomitant]
  19. DOPAMINE HYDROCHLORIDE [Concomitant]
  20. SOLDEM 1 (GLUCOSE, SODIUM LACTATE, SODIUM CHLORIDE) [Concomitant]
  21. CALCIUM CHLORIDE ANHYDROUS (CALCIUM CHLORIDE ANHYDROUS) [Concomitant]
  22. SOLDEM 3A (SODIUM LACTATE, POTASSIUM CHLORIDE, CARBOHYDRATES NOS, SODI [Concomitant]
  23. SODIUM BICARBONATE [Concomitant]
  24. NOVOLIN R [Concomitant]
  25. PRIMPERAN TAB [Concomitant]
  26. THALIDOMIDE [Concomitant]
  27. VINCRISTINE [Concomitant]
  28. MELPHALAN [Concomitant]
  29. RED BLOOD CELLS [Concomitant]
  30. SOLDEM 1 (GLUCOSE, SODIUM LACTATE, SODIUM CHLORIDE) [Concomitant]
  31. ALBUMINAR [Concomitant]
  32. NEUTROGIN [Concomitant]
  33. PLATELETS [Concomitant]

REACTIONS (14)
  - ANAEMIA [None]
  - BLOOD AMYLASE INCREASED [None]
  - COAGULATION TIME PROLONGED [None]
  - DYSURIA [None]
  - HEPATIC FUNCTION ABNORMAL [None]
  - HYPOKALAEMIA [None]
  - HYPOPROTEINAEMIA [None]
  - MUSCLE ATROPHY [None]
  - MUSCULAR WEAKNESS [None]
  - NAUSEA [None]
  - NEUROPATHY PERIPHERAL [None]
  - ORTHOSTATIC HYPOTENSION [None]
  - PLATELET COUNT DECREASED [None]
  - URINARY RETENTION [None]
